FAERS Safety Report 9674299 (Version 2)
Quarter: 2013Q4

REPORT INFORMATION
  Report Type: Spontaneous
  Country: DE (occurrence: DE)
  Receive Date: 20131107
  Receipt Date: 20131107
  Transmission Date: 20140711
  Serious: Yes (Hospitalization)
  Sender: FDA-Public Use
  Company Number: DE-BIOGENIDEC-2013BI024967

PATIENT
  Age: 42 Year
  Sex: Female
  Weight: 115 kg

DRUGS (6)
  1. AVONEX [Suspect]
     Indication: MULTIPLE SCLEROSIS
     Route: 048
     Dates: start: 20100831
  2. PARACETAMOL [Concomitant]
     Indication: FATIGUE
     Dates: start: 20100831
  3. PARACETAMOL [Concomitant]
     Indication: CHILLS
     Dates: start: 20100831
  4. PARACETAMOL [Concomitant]
     Indication: MIGRAINE
     Dates: start: 20100831
  5. L-THYROXIN [Concomitant]
     Indication: HYPOTHYROIDISM
     Dates: start: 2011
  6. SUMATRIPTAN [Concomitant]
     Indication: MIGRAINE
     Dates: start: 2003

REACTIONS (10)
  - Uhthoff^s phenomenon [Recovered/Resolved]
  - Back pain [Recovered/Resolved]
  - Fatigue [Recovered/Resolved]
  - Chills [Recovered/Resolved]
  - Cystitis [Recovered/Resolved]
  - Rotator cuff syndrome [Not Recovered/Not Resolved]
  - Contusion [Recovered/Resolved]
  - Wound [Recovered/Resolved]
  - Accident at work [Recovered/Resolved]
  - Fall [Recovered/Resolved]
